FAERS Safety Report 16473488 (Version 2)
Quarter: 2019Q3

REPORT INFORMATION
  Report Type: Spontaneous
  Country: IT (occurrence: IT)
  Receive Date: 20190625
  Receipt Date: 20190724
  Transmission Date: 20191004
  Serious: Yes (Other)
  Sender: FDA-Public Use
  Company Number: IT-ACCORD-134819

PATIENT
  Age: 57 Year
  Sex: Male

DRUGS (9)
  1. MYCOPHENOLIC ACID. [Suspect]
     Active Substance: MYCOPHENOLIC ACID
     Indication: INTERSTITIAL LUNG DISEASE
  2. NORVASC [Concomitant]
     Active Substance: AMLODIPINE BESYLATE
     Dosage: NORVASC 5 MG
  3. CELEBREX [Concomitant]
     Active Substance: CELECOXIB
  4. CARDIOASPIRIN [Concomitant]
     Active Substance: ASPIRIN
  5. RITUXIMAB. [Suspect]
     Active Substance: RITUXIMAB
     Indication: INTERSTITIAL LUNG DISEASE
  6. MEDROL [Concomitant]
     Active Substance: METHYLPREDNISOLONE
     Dosage: MEDROL 4 MG
  7. TADALAFIL. [Concomitant]
     Active Substance: TADALAFIL
  8. PANTORC [Concomitant]
     Active Substance: PANTOPRAZOLE SODIUM
     Dosage: STRENGTH-20 MG
  9. DIBASE [Concomitant]
     Active Substance: CHOLECALCIFEROL

REACTIONS (2)
  - Lung adenocarcinoma [Not Recovered/Not Resolved]
  - Off label use [Unknown]

NARRATIVE: CASE EVENT DATE: 20190301
